FAERS Safety Report 24152343 (Version 8)
Quarter: 2025Q2

REPORT INFORMATION
  Report Type: Report from Study
  Country: US (occurrence: US)
  Receive Date: 20240730
  Receipt Date: 20250610
  Transmission Date: 20250717
  Serious: Yes (Other)
  Sender: TAKEDA
  Company Number: US-TAKEDA-2022TUS004580

PATIENT
  Sex: Female
  Weight: 49 kg

DRUGS (21)
  1. HUMAN IMMUNOGLOBULIN G [Suspect]
     Active Substance: HUMAN IMMUNOGLOBULIN G
     Indication: Immunodeficiency common variable
     Dosage: 20 GRAM, Q2WEEKS
     Dates: start: 20210324
  2. HUMAN IMMUNOGLOBULIN G [Suspect]
     Active Substance: HUMAN IMMUNOGLOBULIN G
     Dosage: 20 GRAM, Q2WEEKS
     Dates: start: 20230808
  3. HUMAN IMMUNOGLOBULIN G [Suspect]
     Active Substance: HUMAN IMMUNOGLOBULIN G
     Dosage: 20 GRAM, Q2WEEKS
  4. DIPHENHYDRAMINE HYDROCHLORIDE [Concomitant]
     Active Substance: DIPHENHYDRAMINE HYDROCHLORIDE
  5. EPINEPHRINE [Concomitant]
     Active Substance: EPINEPHRINE
  6. LYRICA [Concomitant]
     Active Substance: PREGABALIN
  7. MELATONIN [Concomitant]
     Active Substance: MELATONIN
  8. MIGRAINE RELIEF [Concomitant]
     Active Substance: CURCUMA AROMATICA ROOT\FEVERFEW\GINGER\INDIAN FRANKINCENSE\TURMERIC
  9. TRAMADOL [Concomitant]
     Active Substance: TRAMADOL
  10. ACETAMINOPHEN [Concomitant]
     Active Substance: ACETAMINOPHEN
  11. CLONIDINE HYDROCHLORIDE [Concomitant]
     Active Substance: CLONIDINE HYDROCHLORIDE
  12. ADDERALL [Concomitant]
     Active Substance: AMPHETAMINE ASPARTATE\AMPHETAMINE SULFATE\DEXTROAMPHETAMINE SACCHARATE\DEXTROAMPHETAMINE SULFATE
  13. MAGNESIUM [Concomitant]
     Active Substance: MAGNESIUM
  14. Lmx [Concomitant]
  15. FAMOTIDINE [Concomitant]
     Active Substance: FAMOTIDINE
  16. Betamethasone dipropionate, augmented [Concomitant]
  17. AMANTADINE [Concomitant]
     Active Substance: AMANTADINE
  18. CLOBETASOL [Concomitant]
     Active Substance: CLOBETASOL
  19. VITAMIN D3 [Concomitant]
     Active Substance: CHOLECALCIFEROL
  20. STOOL SOFTENER (DOCUSATE) [Concomitant]
     Active Substance: DOCUSATE
  21. CLINDAGEL [Concomitant]
     Active Substance: CLINDAMYCIN PHOSPHATE
     Dosage: UNK, QD

REACTIONS (6)
  - Lower respiratory tract infection [Unknown]
  - Insurance issue [Unknown]
  - Product use issue [Unknown]
  - Tooth infection [Unknown]
  - Inappropriate schedule of product administration [Unknown]
  - Product dose omission issue [Unknown]
